FAERS Safety Report 25091422 (Version 2)
Quarter: 2025Q3

REPORT INFORMATION
  Report Type: Spontaneous
  Country: US (occurrence: US)
  Receive Date: 20250318
  Receipt Date: 20250725
  Transmission Date: 20251021
  Serious: No
  Sender: SANOFI AVENTIS
  Company Number: US-SA-2025SA076889

PATIENT
  Age: 42 Year
  Sex: Female
  Weight: 56.82 kg

DRUGS (3)
  1. DUPIXENT [Suspect]
     Active Substance: DUPILUMAB
     Indication: Nasal polyps
     Dosage: 300 MG, QOW
     Route: 058
     Dates: start: 2024
  2. MINOXIDIL [Concomitant]
     Active Substance: MINOXIDIL
  3. NUTRAFOL [Concomitant]

REACTIONS (3)
  - Influenza [Recovered/Resolved]
  - Sinusitis [Recovered/Resolved]
  - Menstruation irregular [Not Recovered/Not Resolved]

NARRATIVE: CASE EVENT DATE: 20250101
